FAERS Safety Report 20677045 (Version 1)
Quarter: 2022Q2

REPORT INFORMATION
  Report Type: Spontaneous
  Country: US (occurrence: US)
  Receive Date: 20220406
  Receipt Date: 20220406
  Transmission Date: 20220721
  Serious: Yes (Other)
  Sender: FDA-Public Use
  Company Number: US-CELLTRION INC.-2022US004078

PATIENT

DRUGS (1)
  1. TRUXIMA [Suspect]
     Active Substance: RITUXIMAB-ABBS
     Indication: Demyelination
     Dosage: 1000 MG DAY 1
     Dates: start: 20220315

REACTIONS (2)
  - Demyelination [Unknown]
  - Off label use [Unknown]

NARRATIVE: CASE EVENT DATE: 20220315
